FAERS Safety Report 5750855-3 (Version None)
Quarter: 2008Q2

REPORT INFORMATION
  Report Type: 
  Country: None (occurrence: None)
  Receive Date: 20080528
  Receipt Date: 20080523
  Transmission Date: 20081010
  Serious: Yes (Other)
  Sender: FDA-Public Use
  Company Number: B0522366A

PATIENT
  Age: 45 Year
  Sex: Male

DRUGS (15)
  1. HEPSERA [Suspect]
     Route: 065
     Dates: start: 20040101, end: 20070501
  2. VIREAD [Suspect]
     Route: 065
     Dates: start: 20070501, end: 20070701
  3. LAMIVUDINE [Suspect]
     Route: 065
     Dates: start: 20010101, end: 20070501
  4. RAMIPRIL [Concomitant]
     Route: 065
     Dates: start: 19980101
  5. ASPIRIN [Concomitant]
     Route: 065
     Dates: start: 19980101
  6. ATENOLOL [Concomitant]
     Route: 065
     Dates: start: 19910101
  7. SIMVASTATIN [Concomitant]
     Route: 065
     Dates: start: 20070301
  8. CALCIUM [Concomitant]
     Route: 065
     Dates: start: 20080401
  9. CLONIDINE [Concomitant]
     Route: 065
     Dates: start: 20070601
  10. NOVORAPID [Concomitant]
     Route: 065
     Dates: start: 19890101
  11. LEVEMIR [Concomitant]
     Route: 065
     Dates: start: 20050101
  12. NORVASC [Concomitant]
     Route: 065
     Dates: start: 20070601
  13. SENOKOT [Concomitant]
     Route: 065
  14. DULCOLAX [Concomitant]
     Route: 065
  15. LACTULOSE [Concomitant]
     Route: 065

REACTIONS (5)
  - ALANINE AMINOTRANSFERASE INCREASED [None]
  - ASPARTATE AMINOTRANSFERASE INCREASED [None]
  - BLINDNESS [None]
  - BLOOD CREATININE INCREASED [None]
  - RENAL IMPAIRMENT [None]
